FAERS Safety Report 18444359 (Version 1)
Quarter: 2020Q4

REPORT INFORMATION
  Report Type: Report from Study
  Country: IE (occurrence: IE)
  Receive Date: 20201030
  Receipt Date: 20201030
  Transmission Date: 20210114
  Serious: Yes (Other)
  Sender: FDA-Public Use
  Company Number: IE-AMGEN-IRLSL2020174647

PATIENT
  Age: 70 Year
  Sex: Female

DRUGS (7)
  1. ONDANSETRON [Concomitant]
     Active Substance: ONDANSETRON
     Dosage: 4 MILLIGRAM, AS NECESSARY (AS REQUIRED)
     Route: 050
  2. STEMETIL [PROCHLORPERAZINE] [Concomitant]
     Active Substance: PROCHLORPERAZINE
     Dosage: 5 MILLIGRAM, AS NECESSARY (AS REQUIRED)
     Route: 050
  3. DEXAMETHASONE. [Concomitant]
     Active Substance: DEXAMETHASONE
     Dosage: 4 MILLIGRAM, AS PER CHEMO PRESCRIPTION
     Route: 050
  4. CYCLIZINE [Concomitant]
     Active Substance: CYCLIZINE
     Dosage: 50 MILLIGRAM, AS NECESSARY (AS REQUIRED)
     Route: 050
  5. CETIRIZINE [Concomitant]
     Active Substance: CETIRIZINE HYDROCHLORIDE
     Dosage: 10 MILLIGRAM, AS NECESSARY (AS REQUIRED)
     Route: 050
  6. NEUROFEN [Concomitant]
     Active Substance: IBUPROFEN
     Dosage: 400 MILLIGRAM, AS NECESSARY (AS REQUIRED)
     Route: 050
  7. NEULASTA [Suspect]
     Active Substance: PEGFILGRASTIM
     Indication: PRODUCT USED FOR UNKNOWN INDICATION
     Dosage: 6 MILLIGRAM, Q3WK (POST CHEMOTHERAPY 3 WEEKLY CYCLE)
     Route: 058

REACTIONS (5)
  - Contusion [Recovering/Resolving]
  - Syncope [Recovering/Resolving]
  - Fall [Recovering/Resolving]
  - Nausea [Recovering/Resolving]
  - Head injury [Recovering/Resolving]

NARRATIVE: CASE EVENT DATE: 20201024
